FAERS Safety Report 5812003-0 (Version None)
Quarter: 2008Q3

REPORT INFORMATION
  Report Type: 
  Country: None (occurrence: None)
  Receive Date: 20080714
  Receipt Date: 20080627
  Transmission Date: 20090109
  Serious: Yes (Hospitalization)
  Sender: FDA-Public Use
  Company Number: 2008BI010286

PATIENT
  Age: 42 Year
  Sex: Female

DRUGS (10)
  1. TYSABRI [Suspect]
     Indication: RELAPSING-REMITTING MULTIPLE SCLEROSIS
     Dosage: 300 MG; QM; IV; 300 MG; QM; IV
     Route: 042
     Dates: start: 20070606, end: 20080312
  2. TYSABRI [Suspect]
     Indication: RELAPSING-REMITTING MULTIPLE SCLEROSIS
     Dosage: 300 MG; QM; IV; 300 MG; QM; IV
     Route: 042
     Dates: start: 20070425
  3. PAROXETINE HCL [Concomitant]
  4. CLONAZEPAM [Concomitant]
  5. FLURBIPROFEN [Concomitant]
  6. COLLYRIUM [Concomitant]
  7. PIROXICAM [Concomitant]
  8. OLMESARTAN MEDOXOMIL [Concomitant]
  9. TRIPHASIL-21 [Concomitant]
  10. BETAFERON [Concomitant]

REACTIONS (5)
  - BLOOD PRESSURE INCREASED [None]
  - FACIAL PALSY [None]
  - HEMIPLEGIA [None]
  - ISCHAEMIC STROKE [None]
  - PROGRESSIVE MULTIFOCAL LEUKOENCEPHALOPATHY [None]
